FAERS Safety Report 8982829 (Version 1)
Quarter: 2012Q4

REPORT INFORMATION
  Report Type: Report from Study
  Country: ES (occurrence: ES)
  Receive Date: 20121221
  Receipt Date: 20121221
  Transmission Date: 20130627
  Serious: Yes (Death)
  Sender: FDA-Public Use
  Company Number: ES-CELGENEUS-144-50794-12121920

PATIENT
  Sex: Male

DRUGS (1)
  1. VIDAZA [Suspect]
     Indication: ACUTE MYELOID LEUKEMIA
     Dosage: 75 milligram/sq. meter
     Route: 065
     Dates: start: 20120306, end: 20121127

REACTIONS (3)
  - General physical health deterioration [Fatal]
  - Drug tolerance decreased [Fatal]
  - Adverse drug reaction [Fatal]
